FAERS Safety Report 11619926 (Version 2)
Quarter: 2016Q1

REPORT INFORMATION
  Report Type: Spontaneous
  Country: BE (occurrence: BE)
  Receive Date: 20151012
  Receipt Date: 20160112
  Transmission Date: 20160525
  Serious: Yes (Hospitalization, Other)
  Sender: FDA-Public Use
  Company Number: BE-BRISTOL-MYERS SQUIBB COMPANY-BMS-2015-067928

PATIENT
  Age: 73 Year

DRUGS (1)
  1. ELIQUIS [Suspect]
     Active Substance: APIXABAN
     Indication: PRODUCT USED FOR UNKNOWN INDICATION
     Dosage: 5 MG, BID
     Route: 048
     Dates: start: 201504

REACTIONS (4)
  - Pulmonary embolism [Unknown]
  - Pulmonary hypertension [Unknown]
  - Embolic stroke [Unknown]
  - Off label use [Unknown]

NARRATIVE: CASE EVENT DATE: 2015
